FAERS Safety Report 16734862 (Version 1)
Quarter: 2019Q3

REPORT INFORMATION
  Report Type: Other
  Country: BE (occurrence: BE)
  Receive Date: 20190823
  Receipt Date: 20190823
  Transmission Date: 20191005
  Serious: Yes (Life-Threatening, Hospitalization)
  Sender: FDA-Public Use
  Company Number: BE-EMD SERONO-9112255

PATIENT
  Age: 55 Year
  Sex: Male

DRUGS (1)
  1. CLADRIBINE. [Suspect]
     Active Substance: CLADRIBINE
     Indication: MULTIPLE SCLEROSIS
     Dosage: FIRST TREATMENT COURSE

REACTIONS (4)
  - Herpes zoster [Unknown]
  - Lymphopenia [Unknown]
  - Urosepsis [Unknown]
  - Myasthenia gravis [Recovered/Resolved]
